FAERS Safety Report 10364961 (Version 1)
Quarter: 2014Q3

REPORT INFORMATION
  Report Type: Spontaneous
  Country: US (occurrence: US)
  Receive Date: 20140806
  Receipt Date: 20140806
  Transmission Date: 20150326
  Serious: No
  Sender: FDA-Public Use
  Company Number: US-GLAXOSMITHKLINE-A1043096A

PATIENT
  Sex: Female

DRUGS (5)
  1. ADVAIR HFA [Suspect]
     Active Substance: FLUTICASONE PROPIONATE\SALMETEROL XINAFOATE
     Dates: start: 2008, end: 2009
  2. ADVAIR HFA [Suspect]
     Active Substance: FLUTICASONE PROPIONATE\SALMETEROL XINAFOATE
     Dates: start: 2008, end: 2009
  3. SINGULAIR [Concomitant]
     Active Substance: MONTELUKAST SODIUM
  4. BENADRYL [Concomitant]
     Active Substance: DIPHENHYDRAMINE HYDROCHLORIDE
  5. VENTOLIN [Suspect]
     Active Substance: ALBUTEROL SULFATE
     Indication: DYSPNOEA
     Dates: start: 2007

REACTIONS (6)
  - Dental caries [Unknown]
  - Drug ineffective [Unknown]
  - Tooth discolouration [Unknown]
  - Product quality issue [Unknown]
  - Hypersensitivity [Unknown]
  - Dyspnoea [Unknown]
